FAERS Safety Report 16386689 (Version 2)
Quarter: 2019Q3

REPORT INFORMATION
  Report Type: Report from Study
  Country: US (occurrence: US)
  Receive Date: 20190604
  Receipt Date: 20190730
  Transmission Date: 20191004
  Serious: No
  Sender: FDA-Public Use
  Company Number: PHEH2019US023339

PATIENT
  Sex: Male

DRUGS (2)
  1. ENTRESTO [Suspect]
     Active Substance: SACUBITRIL\VALSARTAN
     Indication: PRODUCT USED FOR UNKNOWN INDICATION
     Route: 048
  2. ENTRESTO [Suspect]
     Active Substance: SACUBITRIL\VALSARTAN
     Dosage: 1 DF (SACUBITRIL 49 MG/VALSARTAN 51 MG)), UNK
     Route: 065

REACTIONS (5)
  - Apathy [Unknown]
  - Fatigue [Unknown]
  - Body mass index increased [Unknown]
  - Frustration tolerance decreased [Unknown]
  - Blood sodium decreased [Unknown]
